FAERS Safety Report 6240348-1 (Version None)
Quarter: 2009Q2

REPORT INFORMATION
  Report Type: 
  Country: None (occurrence: None)
  Receive Date: 20090623
  Receipt Date: 20080811
  Transmission Date: 20091009
  Serious: No
  Sender: FDA-Public Use
  Company Number: US-ASTRAZENECA-2008UW16542

PATIENT
  Age: 86 Year
  Sex: Male
  Weight: 49.9 kg

DRUGS (1)
  1. PULMICORT RESPULES [Suspect]
     Route: 055
     Dates: start: 20080721

REACTIONS (1)
  - DYSPNOEA [None]
